FAERS Safety Report 15590243 (Version 1)
Quarter: 2018Q4

REPORT INFORMATION
  Report Type: Spontaneous
  Country: AR (occurrence: AR)
  Receive Date: 20181106
  Receipt Date: 20181106
  Transmission Date: 20190205
  Serious: Yes (Other)
  Sender: FDA-Public Use
  Company Number: AR-PENTEC HEALTH-2018PEN00061

PATIENT
  Age: 38 Year
  Sex: Male

DRUGS (7)
  1. VANCOMYCIN HYDROCHLORIDE. [Suspect]
     Active Substance: VANCOMYCIN HYDROCHLORIDE
     Indication: STAPHYLOCOCCAL INFECTION
     Route: 042
  2. INSULIN [Concomitant]
     Active Substance: INSULIN NOS
     Route: 065
  3. SODIUM HEPARIN [Concomitant]
     Active Substance: HEPARIN SODIUM
     Route: 065
  4. OMEPRAZOLE. [Concomitant]
     Active Substance: OMEPRAZOLE
     Route: 065
  5. VANCOMYCIN HYDROCHLORIDE. [Suspect]
     Active Substance: VANCOMYCIN HYDROCHLORIDE
     Dosage: 4.5 G, 1X/DAY
     Route: 042
  6. VANCOMYCIN HYDROCHLORIDE. [Suspect]
     Active Substance: VANCOMYCIN HYDROCHLORIDE
     Dosage: 4 G, 1X/DAY
     Route: 042
  7. PARACETAMOL [Concomitant]
     Active Substance: ACETAMINOPHEN
     Route: 065

REACTIONS (2)
  - Agranulocytosis [Recovered/Resolved]
  - Antineutrophil cytoplasmic antibody positive [Recovered/Resolved]
